FAERS Safety Report 4683164-4 (Version None)
Quarter: 2005Q2

REPORT INFORMATION
  Report Type: 
  Country: None (occurrence: None)
  Receive Date: 20050602
  Receipt Date: 20050308
  Transmission Date: 20051028
  Serious: No
  Sender: FDA-Public Use
  Company Number: USA050392902

PATIENT
  Age: 78 Year
  Sex: Female

DRUGS (4)
  1. CYMBALTA [Suspect]
     Indication: DEPRESSION
     Dosage: 30 MG/D
  2. ZYPREXA [Suspect]
     Dosage: 1.25 MG/D
  3. WELLBUTRIN SR [Concomitant]
  4. ACHROSTATIN [Concomitant]

REACTIONS (2)
  - AMNESIA [None]
  - COGNITIVE DISORDER [None]
